FAERS Safety Report 5071244-3 (Version None)
Quarter: 2006Q3

REPORT INFORMATION
  Report Type: 
  Country: None (occurrence: None)
  Receive Date: 20060803
  Receipt Date: 20060803
  Transmission Date: 20061208
  Serious: Yes (Other)
  Sender: FDA-Public Use
  Company Number: None

PATIENT
  Age: 81 Year
  Sex: Female

DRUGS (6)
  1. FENTANYL [Suspect]
     Indication: PAIN
     Dosage: CHANGE EVERY 72 HOURS AS DIRECTED
     Dates: start: 20060203, end: 20060724
  2. ADVAIR DISKUS 100/50 [Concomitant]
  3. SPIRONOLACTONE [Concomitant]
  4. AMITRIPTYLINE HCL [Concomitant]
  5. DILTIAZEM [Concomitant]
  6. NEXIUM [Concomitant]

REACTIONS (2)
  - BREAKTHROUGH PAIN [None]
  - PHARMACEUTICAL PRODUCT COMPLAINT [None]
